FAERS Safety Report 6260913-5 (Version None)
Quarter: 2009Q3

REPORT INFORMATION
  Report Type: 
  Country: None (occurrence: None)
  Receive Date: 20090709
  Receipt Date: 20070921
  Transmission Date: 20100115
  Serious: Yes (Hospitalization, Other)
  Sender: FDA-Public Use
  Company Number: US-ASTRAZENECA-2006UW22683

PATIENT
  Age: 29 Year
  Sex: Male
  Weight: 148.8 kg

DRUGS (41)
  1. SEROQUEL [Suspect]
     Indication: SCHIZOPHRENIA
     Dosage: 25-1200 MG
     Route: 048
     Dates: start: 19990810
  2. SEROQUEL [Suspect]
     Indication: DEPRESSION
     Dosage: 25-1200 MG
     Route: 048
     Dates: start: 19990810
  3. SEROQUEL [Suspect]
     Route: 048
     Dates: start: 20000509, end: 20070130
  4. SEROQUEL [Suspect]
     Route: 048
     Dates: start: 20000509, end: 20070130
  5. SEROQUEL [Suspect]
     Route: 048
     Dates: start: 20060530, end: 20070130
  6. SEROQUEL [Suspect]
     Route: 048
     Dates: start: 20060530, end: 20070130
  7. ABILIFY [Concomitant]
     Dates: start: 20060508
  8. CLOZARIL [Concomitant]
     Dates: start: 20061230
  9. HALDOL [Concomitant]
     Dates: start: 19980115
  10. RISPERDAL [Concomitant]
     Dates: start: 19980601
  11. ZYPREXA [Concomitant]
     Dates: start: 19990803
  12. ZOLOFT [Concomitant]
     Dates: start: 20020608
  13. DEPAKOTE [Concomitant]
     Dates: start: 20061010
  14. PAXIL [Concomitant]
     Dates: start: 19991130
  15. GLUCOPHAGE [Concomitant]
  16. METFORMIN HCL [Concomitant]
  17. COGENTIN [Concomitant]
  18. TOPAMAX [Concomitant]
  19. LIPITOR [Concomitant]
  20. LISINOPRIL [Concomitant]
  21. TOPROL-XL [Concomitant]
  22. PREVACID [Concomitant]
  23. NPH ILETIN II [Concomitant]
  24. ATIVAN [Concomitant]
  25. TYLENOL (CAPLET) [Concomitant]
  26. NOVOLIN R [Concomitant]
  27. WELLBUTRIN [Concomitant]
  28. GLYBURIDE [Concomitant]
  29. PEPCID [Concomitant]
  30. LEVOTHYROXINE SODIUM [Concomitant]
  31. DESMOPRESSIN ACETATE [Concomitant]
  32. BENADRYL [Concomitant]
  33. CLOZAPINE [Concomitant]
  34. HYDROCHLOROTHIAZIDE [Concomitant]
  35. AMBIEN [Concomitant]
  36. LITHIUM CARBONATE [Concomitant]
  37. HYDROCORTISONE [Concomitant]
  38. TRIAMCINOLONE [Concomitant]
  39. COLACE [Concomitant]
  40. MAALOX [Concomitant]
  41. MYLANTA [Concomitant]

REACTIONS (7)
  - ATELECTASIS [None]
  - DIABETES MELLITUS [None]
  - DIABETIC KETOACIDOSIS [None]
  - MULTIPLE INJURIES [None]
  - RENAL FAILURE ACUTE [None]
  - SINUS TACHYCARDIA [None]
  - SINUSITIS [None]
